FAERS Safety Report 7699001-X (Version None)
Quarter: 2011Q3

REPORT INFORMATION
  Report Type: 
  Country: None (occurrence: None)
  Receive Date: 20110819
  Receipt Date: 20110816
  Transmission Date: 20111222
  Serious: No
  Sender: FDA-Public Use
  Company Number: US-TEVA-296763USA

PATIENT
  Sex: Male

DRUGS (10)
  1. SERETIDE                           /01420901/ [Concomitant]
  2. NORTRIPTYLINE HCL [Concomitant]
  3. PROAIR HFA [Suspect]
     Dosage: 360 MICROGRAM;
     Route: 055
     Dates: start: 20110802, end: 20110816
  4. FLUTICASONE PROPIONATE [Concomitant]
  5. OMEPRAZOLE [Concomitant]
  6. AMLODIPINE [Concomitant]
  7. LISINOPRIL [Concomitant]
  8. ALBUTEROL [Concomitant]
  9. PREDNISONE [Concomitant]
  10. SILDENAFIL CITRATE [Concomitant]

REACTIONS (1)
  - THROAT IRRITATION [None]
